FAERS Safety Report 5043170-7 (Version None)
Quarter: 2006Q3

REPORT INFORMATION
  Report Type: 
  Country: None (occurrence: None)
  Receive Date: 20060703
  Receipt Date: 20060703
  Transmission Date: 20061208
  Serious: Yes (Hospitalization)
  Sender: FDA-Public Use
  Company Number: None

PATIENT
  Age: 87 Year
  Sex: Male
  Weight: 65.7716 kg

DRUGS (11)
  1. LISINOPRIL [Suspect]
     Indication: HYPERTENSION
     Dosage: 20 MG TWICE DAILY PO
     Route: 048
     Dates: start: 20041001, end: 20060601
  2. CAMPHOR/MENTHOL [Concomitant]
  3. CLONIDINE [Concomitant]
  4. DOCHSATE/SENNOSIDE [Concomitant]
  5. FLUNISOLIDE [Concomitant]
  6. FORMOTEROL FUMARATE [Concomitant]
  7. TRIAMTERENE AND HYDROCHLOROTHIAZIDE [Concomitant]
  8. MOMETASONE FUROATE [Concomitant]
  9. OMEPRAZOLE [Concomitant]
  10. THEOPHYLLINE [Concomitant]
  11. TIOTROPIUM [Concomitant]

REACTIONS (1)
  - ANGIONEUROTIC OEDEMA [None]
